FAERS Safety Report 14313319 (Version 1)
Quarter: 2017Q4

REPORT INFORMATION
  Report Type: Spontaneous
  Country: US (occurrence: US)
  Receive Date: 20171220
  Receipt Date: 20171220
  Transmission Date: 20180321
  Serious: Yes (Disabling, Other)
  Sender: FDA-Public Use
  Company Number: None

PATIENT
  Age: 33 Year
  Sex: Male
  Weight: 72 kg

DRUGS (1)
  1. DEXTROAMPHETAMINE SULFATE. [Suspect]
     Active Substance: DEXTROAMPHETAMINE SULFATE
     Indication: ATTENTION DEFICIT/HYPERACTIVITY DISORDER
     Dosage: ?          QUANTITY:90 TABLET(S);?
     Route: 048
     Dates: start: 20171211, end: 20171218

REACTIONS (9)
  - Decreased appetite [None]
  - Disturbance in attention [None]
  - Product substitution issue [None]
  - Depression [None]
  - Fatigue [None]
  - Somnolence [None]
  - Irritability [None]
  - Vision blurred [None]
  - Drug ineffective [None]

NARRATIVE: CASE EVENT DATE: 20171211
